FAERS Safety Report 17405918 (Version 1)
Quarter: 2020Q1

REPORT INFORMATION
  Report Type: Spontaneous
  Country: US (occurrence: US)
  Receive Date: 20200212
  Receipt Date: 20200212
  Transmission Date: 20200409
  Serious: No
  Sender: FDA-Public Use
  Company Number: US-CIPLA LTD.-2019US07563

PATIENT

DRUGS (1)
  1. TESTOSTERONE. [Suspect]
     Active Substance: TESTOSTERONE
     Indication: PRODUCT USED FOR UNKNOWN INDICATION
     Dosage: UNK
     Route: 061

REACTIONS (7)
  - Product container issue [Unknown]
  - Irritability [Unknown]
  - Product odour abnormal [Unknown]
  - Headache [Unknown]
  - Product physical consistency issue [Unknown]
  - Drug ineffective [Unknown]
  - Feeling jittery [Unknown]
